FAERS Safety Report 21397993 (Version 1)
Quarter: 2022Q3

REPORT INFORMATION
  Report Type: Report from Study
  Country: US (occurrence: US)
  Receive Date: 20220930
  Receipt Date: 20220930
  Transmission Date: 20221027
  Serious: No
  Sender: FDA-Public Use
  Company Number: US-ABBVIE-22K-163-4407042-00

PATIENT
  Age: 55 Year
  Sex: Female

DRUGS (6)
  1. HUMIRA [Suspect]
     Active Substance: ADALIMUMAB
     Indication: Crohn^s disease
     Route: 058
  2. HUMIRA [Suspect]
     Active Substance: ADALIMUMAB
     Dosage: TIME INTERVAL: 1 TOTAL: CITRATE FREE
     Route: 058
     Dates: start: 2022, end: 2022
  3. HUMIRA [Suspect]
     Active Substance: ADALIMUMAB
     Dosage: CITRATE FREE
     Route: 058
     Dates: start: 20220519, end: 2022
  4. PFIZER/BIONTECH COVID VACCINE [Concomitant]
     Indication: COVID-19 immunisation
     Dosage: SECOND DOSE ONCE
     Route: 030
     Dates: start: 20210701, end: 20210701
  5. PFIZER/BIONTECH COVID VACCINE [Concomitant]
     Indication: COVID-19 immunisation
     Dosage: THIRD DOSE/BOOSTER DOSE ONCE
     Route: 030
     Dates: start: 20220201, end: 20220201
  6. PFIZER/BIONTECH COVID VACCINE [Concomitant]
     Indication: COVID-19 immunisation
     Dosage: FIRST DOSE ONCE
     Route: 030
     Dates: start: 20210601, end: 20210601

REACTIONS (2)
  - Pruritus [Recovered/Resolved]
  - Headache [Not Recovered/Not Resolved]

NARRATIVE: CASE EVENT DATE: 20220519
